FAERS Safety Report 11872856 (Version 5)
Quarter: 2016Q4

REPORT INFORMATION
  Report Type: Spontaneous
  Country: US (occurrence: US)
  Receive Date: 20151228
  Receipt Date: 20161227
  Transmission Date: 20170206
  Serious: Yes (Death, Other)
  Sender: FDA-Public Use
  Company Number: US-PFIZER INC-2015433899

PATIENT
  Age: 71 Year
  Sex: Female

DRUGS (2)
  1. IBRANCE [Suspect]
     Active Substance: PALBOCICLIB
     Dosage: 125 MG, UNK
     Dates: start: 20151124
  2. LETROZOLE. [Suspect]
     Active Substance: LETROZOLE
     Dosage: UNK

REACTIONS (14)
  - Fatigue [Unknown]
  - Stomatitis [Unknown]
  - Epistaxis [Unknown]
  - Drug dose omission [Unknown]
  - Nasopharyngitis [Unknown]
  - Alopecia [Unknown]
  - Death [Fatal]
  - Malaise [Unknown]
  - Thrombosis [Unknown]
  - Constipation [Not Recovered/Not Resolved]
  - Upper respiratory tract infection [Unknown]
  - Red blood cell count decreased [Unknown]
  - Eye haemorrhage [Unknown]
  - White blood cell count decreased [Unknown]
